FAERS Safety Report 8329725-2 (Version None)
Quarter: 2012Q2

REPORT INFORMATION
  Report Type: 
  Country: None (occurrence: None)
  Receive Date: 20120502
  Receipt Date: 20120424
  Transmission Date: 20120825
  Serious: Yes (Hospitalization)
  Sender: FDA-Public Use
  Company Number: BR-GLAXOSMITHKLINE-B0799003A

PATIENT
  Sex: Female
  Weight: 70 kg

DRUGS (3)
  1. METFORMIN HYDROCHLORIDE [Concomitant]
     Indication: BLOOD GLUCOSE
     Route: 048
  2. BENICAR HCT [Concomitant]
     Indication: BLOOD PRESSURE
     Route: 048
  3. PROPAFENONE HCL [Suspect]
     Indication: ARRHYTHMIA
     Route: 048

REACTIONS (2)
  - MEMORY IMPAIRMENT [None]
  - URINARY TRACT INFECTION [None]
